FAERS Safety Report 5118896-7 (Version None)
Quarter: 2006Q4

REPORT INFORMATION
  Report Type: 
  Country: None (occurrence: None)
  Receive Date: 20061002
  Receipt Date: 20060928
  Transmission Date: 20070319
  Serious: Yes (Death, Hospitalization, Other)
  Sender: FDA-Public Use
  Company Number: US-ROXANE LABORATORIES, INC-2006-BP-11458BP

PATIENT
  Sex: Male
  Weight: 3.1 kg

DRUGS (16)
  1. VIRAMUNE [Suspect]
     Indication: VERTICAL INFECTION TRANSMISSION
     Route: 048
     Dates: start: 20060715, end: 20060721
  2. ZIDOVUDINE [Suspect]
     Indication: VERTICAL INFECTION TRANSMISSION
     Route: 048
     Dates: start: 20060715, end: 20060816
  3. NYSTATIN [Concomitant]
     Indication: ORAL CANDIDIASIS
     Route: 048
     Dates: start: 20060815, end: 20060827
  4. NYSTATIN [Concomitant]
     Route: 048
     Dates: start: 20060822, end: 20060827
  5. NYSTATIN [Concomitant]
     Route: 061
     Dates: start: 20060821, end: 20060827
  6. PHENOTEROL [Concomitant]
     Indication: BRONCHOSPASM
     Route: 055
     Dates: start: 20060821, end: 20060821
  7. PHENOTEROL [Concomitant]
     Route: 055
     Dates: start: 20060822, end: 20060822
  8. PHENOTEROL [Concomitant]
     Route: 055
     Dates: start: 20060823, end: 20060823
  9. PHENOTEROL [Concomitant]
     Route: 055
     Dates: start: 20060826, end: 20060826
  10. ASCORBIC ACID [Concomitant]
     Indication: ANAEMIA
     Route: 048
     Dates: start: 20060823, end: 20060827
  11. IRON [Concomitant]
     Indication: ANAEMIA
     Route: 048
     Dates: start: 20060823, end: 20060827
  12. DIPYRONE INJ [Concomitant]
     Indication: PYREXIA
     Route: 048
     Dates: start: 20060822, end: 20060822
  13. VITAMIN K [Concomitant]
     Indication: PROPHYLAXIS
     Route: 030
     Dates: start: 20060714, end: 20060714
  14. AQUEOUS PENICILLIN G [Concomitant]
     Indication: SYPHILIS
     Route: 042
     Dates: start: 20060714, end: 20060714
  15. AQUEOUS PENICILLIN G [Concomitant]
     Route: 042
     Dates: start: 20060715, end: 20060722
  16. AQUEOUS PENICILLIN G [Concomitant]
     Route: 042
     Dates: start: 20060723, end: 20060724

REACTIONS (6)
  - ALANINE AMINOTRANSFERASE INCREASED [None]
  - ASPARTATE AMINOTRANSFERASE INCREASED [None]
  - BRONCHIOLITIS [None]
  - HAEMOGLOBIN DECREASED [None]
  - NEUTROPENIA [None]
  - RESPIRATORY FAILURE [None]
